FAERS Safety Report 4666085-2 (Version None)
Quarter: 2005Q2

REPORT INFORMATION
  Report Type: 
  Country: None (occurrence: None)
  Receive Date: 20050519
  Receipt Date: 20041203
  Transmission Date: 20051028
  Serious: Yes (Other)
  Sender: FDA-Public Use
  Company Number: GB-GLAXOSMITHKLINE-B0361058A

PATIENT
  Sex: Male

DRUGS (4)
  1. PAROXETINE HYDROCHLORIDE [Suspect]
     Route: 065
  2. PAROXETINE HYDROCHLORIDE [Suspect]
     Route: 065
  3. VALPROATE SODIUM [Concomitant]
     Route: 065
     Dates: start: 20020801
  4. STILNOCT [Concomitant]
     Route: 065

REACTIONS (13)
  - AGGRESSION [None]
  - AGITATION [None]
  - BALANCE DISORDER [None]
  - DIZZINESS [None]
  - DRUG WITHDRAWAL SYNDROME [None]
  - ERECTILE DYSFUNCTION [None]
  - HEADACHE [None]
  - HYPERHIDROSIS [None]
  - HYPNAGOGIC HALLUCINATION [None]
  - HYPOMANIA [None]
  - IRRITABILITY [None]
  - LOGORRHOEA [None]
  - VERTIGO [None]
